FAERS Safety Report 8415383-5 (Version None)
Quarter: 2012Q2

REPORT INFORMATION
  Report Type: 
  Country: None (occurrence: None)
  Receive Date: 20120323
  Receipt Date: 20111209
  Transmission Date: 20120825
  Serious: Yes (Hospitalization)
  Sender: FDA-Public Use
  Company Number: 163-21880-11121451

PATIENT
  Age: 84 Year
  Sex: Male

DRUGS (8)
  1. VICODIN [Concomitant]
  2. GABAPENTIN [Concomitant]
  3. LEXAPRO [Concomitant]
  4. PREDNISONE TAB [Concomitant]
  5. ASPIRIN [Concomitant]
  6. REVLIMID [Suspect]
     Indication: MULTIPLE MYELOMA
     Dosage: 25 MG, 1 IN 1 D, PO
     Route: 048
     Dates: start: 20111018, end: 20111209
  7. POTASSIUM CHLORIDE [Concomitant]
  8. LEVOFLOXACIN [Concomitant]

REACTIONS (6)
  - DIARRHOEA [None]
  - PYREXIA [None]
  - INFLUENZA [None]
  - NAUSEA [None]
  - DEHYDRATION [None]
  - VOMITING [None]
